FAERS Safety Report 5715851-0 (Version None)
Quarter: 2008Q2

REPORT INFORMATION
  Report Type: 
  Country: None (occurrence: None)
  Receive Date: 20080424
  Receipt Date: 20080304
  Transmission Date: 20081010
  Serious: No
  Sender: FDA-Public Use
  Company Number: US-BAYER-200816131NA

PATIENT

DRUGS (1)
  1. ULTRAVIST-370 SINGLE VIAL USE [Suspect]
     Indication: COMPUTERISED TOMOGRAM ABDOMEN
     Dates: start: 20071212, end: 20071212

REACTIONS (2)
  - ERYTHEMA [None]
  - URTICARIA [None]
